FAERS Safety Report 7743027-4 (Version None)
Quarter: 2011Q3

REPORT INFORMATION
  Report Type: 
  Country: None (occurrence: None)
  Receive Date: 20110912
  Receipt Date: 20110904
  Transmission Date: 20111222
  Serious: Yes (Hospitalization)
  Sender: FDA-Public Use
  Company Number: US-ROCHE-796756

PATIENT
  Sex: Male

DRUGS (2)
  1. RIBAVIRIN [Suspect]
     Dosage: IN DIVIDED DOSES, 3 RIVERS BRAND
     Route: 065
     Dates: start: 20110811
  2. PEGASYS [Suspect]
     Route: 065
     Dates: start: 20110811

REACTIONS (7)
  - CHILLS [None]
  - FATIGUE [None]
  - INJECTION SITE DISCOMFORT [None]
  - EAR INFECTION [None]
  - NAUSEA [None]
  - HEADACHE [None]
  - PYREXIA [None]
